FAERS Safety Report 4289545-5 (Version None)
Quarter: 2004Q1

REPORT INFORMATION
  Report Type: 
  Country: None (occurrence: None)
  Receive Date: 20040206
  Receipt Date: 20030101
  Transmission Date: 20041129
  Serious: Yes (Hospitalization, Other)
  Sender: FDA-Public Use
  Company Number: KII-2003-0007024

PATIENT
  Age: 55 Year
  Sex: Female

DRUGS (3)
  1. MORPHINE SULFATE [Suspect]
  2. AMPHETAMINE SULFATE TAB [Suspect]
  3. PROMETHAZINE HYDROCHLORIDE TAB [Suspect]
     Dosage: SEE IMAGE
     Dates: start: 20020101

REACTIONS (17)
  - BACK PAIN [None]
  - BLOOD CREATINE ABNORMAL [None]
  - BLOOD PRESSURE INCREASED [None]
  - CLONIC CONVULSION [None]
  - CONFUSIONAL STATE [None]
  - DRUG WITHDRAWAL SYNDROME [None]
  - HYPOTONIA [None]
  - METABOLIC ENCEPHALOPATHY [None]
  - MOANING [None]
  - MYDRIASIS [None]
  - NAUSEA [None]
  - NEUROLOGICAL SYMPTOM [None]
  - PSYCHOMOTOR RETARDATION [None]
  - PYREXIA [None]
  - RESTLESSNESS [None]
  - TACHYCARDIA [None]
  - VOMITING [None]
